FAERS Safety Report 9008497 (Version 2)
Quarter: 2013Q1

REPORT INFORMATION
  Report Type: Spontaneous
  Country: US (occurrence: US)
  Receive Date: 20130111
  Receipt Date: 20130214
  Transmission Date: 20140127
  Serious: Yes (Other)
  Sender: FDA-Public Use
  Company Number: US-PFIZER INC-2013008852

PATIENT
  Age: 84 Year
  Sex: Male
  Weight: 90.7 kg

DRUGS (3)
  1. TOVIAZ [Suspect]
     Indication: URINARY INCONTINENCE
     Dosage: 4 MG, 1X/DAY
  2. TOVIAZ [Suspect]
     Dosage: 8 MG, 1X/DAY
     Dates: start: 2012
  3. TOVIAZ [Suspect]
     Dosage: 4 MG, 1X/DAY
     Dates: start: 2012

REACTIONS (3)
  - Dehydration [Recovered/Resolved]
  - Nocturia [Unknown]
  - Drug ineffective [Unknown]
